FAERS Safety Report 5931146-4 (Version None)
Quarter: 2008Q4

REPORT INFORMATION
  Report Type: 
  Country: None (occurrence: None)
  Receive Date: 20081027
  Receipt Date: 20081017
  Transmission Date: 20090506
  Serious: Yes (Other)
  Sender: FDA-Public Use
  Company Number: PHHY2008AR25080

PATIENT
  Sex: Female

DRUGS (3)
  1. EXFORGE [Suspect]
     Indication: HYPERTENSION
     Dosage: 160/10 MG
     Dates: start: 20080801, end: 20081001
  2. ACETYLSALICYLIC ACID SRT [Concomitant]
  3. NIMODIPINE [Concomitant]

REACTIONS (2)
  - CEREBRAL ISCHAEMIA [None]
  - SYNCOPE [None]
